FAERS Safety Report 9739299 (Version 2)
Quarter: 2014Q1

REPORT INFORMATION
  Report Type: Spontaneous
  Country: US (occurrence: US)
  Receive Date: 20131209
  Receipt Date: 20140108
  Transmission Date: 20141002
  Serious: Yes (Other)
  Sender: FDA-Public Use
  Company Number: US-SA-2013SA126921

PATIENT
  Age: 76 Year
  Sex: Female
  Weight: 99.79 kg

DRUGS (8)
  1. LANTUS SOLOSTAR [Suspect]
     Indication: TYPE 2 DIABETES MELLITUS
     Dosage: DOSE:90 UNIT(S)
     Route: 051
     Dates: start: 201208
  2. LANTUS [Suspect]
     Indication: TYPE 2 DIABETES MELLITUS
     Dosage: 30 UNITS AND 40 UNITS
     Route: 051
     Dates: start: 201210
  3. METFORMIN [Suspect]
     Route: 065
  4. SOLOSTAR [Concomitant]
     Dates: start: 201208
  5. CARVEDILOL [Concomitant]
     Indication: HYPERTENSION
     Route: 065
     Dates: start: 20131003
  6. SIMVASTATIN [Concomitant]
     Indication: BLOOD CHOLESTEROL
     Route: 065
     Dates: start: 20131011
  7. AMLODIPINE [Concomitant]
     Route: 065
     Dates: start: 20130925
  8. ASPIRIN ^BAYER^ [Concomitant]
     Indication: ANTICOAGULANT THERAPY
     Route: 065
     Dates: start: 20130412

REACTIONS (6)
  - Deafness [Not Recovered/Not Resolved]
  - Stress [Not Recovered/Not Resolved]
  - Joint swelling [Not Recovered/Not Resolved]
  - Blood glucose increased [Not Recovered/Not Resolved]
  - Drug ineffective [Not Recovered/Not Resolved]
  - Blood glucose decreased [Recovered/Resolved]
